FAERS Safety Report 24128057 (Version 1)
Quarter: 2024Q3

REPORT INFORMATION
  Report Type: Report from Study
  Country: US (occurrence: US)
  Receive Date: 20240723
  Receipt Date: 20240723
  Transmission Date: 20241017
  Serious: No
  Sender: VANDA PHARMACEUTICALS
  Company Number: US-VANDA PHARMACEUTICALS, INC-2024TASUS007178

PATIENT
  Sex: Female
  Weight: 21.995 kg

DRUGS (5)
  1. HETLIOZ LQ [Suspect]
     Active Substance: TASIMELTEON
     Indication: Smith-Magenis syndrome
     Dosage: 3.9 MILLILITER, QHS, (15.6 MG AT THE SAME TIME EVERY NIGHT )1 HOUR BEFORE BEDTIME
     Route: 048
     Dates: start: 20220722
  2. HETLIOZ LQ [Suspect]
     Active Substance: TASIMELTEON
     Dosage: 3.9 MILLILITER, QHS, (15.6 MG AT THE SAME TIME EVERY NIGHT )1 HOUR BEFORE BEDTIME
     Route: 048
     Dates: start: 20220722
  3. HETLIOZ LQ [Suspect]
     Active Substance: TASIMELTEON
     Dosage: 3.9 MILLILITER, QHS, (15.6 MG AT THE SAME TIME EVERY NIGHT )1 HOUR BEFORE BEDTIME
     Route: 048
     Dates: start: 20220722
  4. GUANFACINE HYDROCHLORIDE [Concomitant]
     Active Substance: GUANFACINE HYDROCHLORIDE
     Indication: Product used for unknown indication
  5. NYSTATIN [Concomitant]
     Active Substance: NYSTATIN
     Indication: Product used for unknown indication

REACTIONS (7)
  - Malaise [Unknown]
  - Weight increased [Recovered/Resolved]
  - COVID-19 [Unknown]
  - Influenza [Unknown]
  - Pharyngitis streptococcal [Unknown]
  - Therapy change [Unknown]
  - Therapeutic product effect decreased [Unknown]
